FAERS Safety Report 7812640-8 (Version None)
Quarter: 2011Q4

REPORT INFORMATION
  Report Type: 
  Country: None (occurrence: None)
  Receive Date: 20111013
  Receipt Date: 20111005
  Transmission Date: 20120403
  Serious: Yes (Other)
  Sender: FDA-Public Use
  Company Number: US-BAYER-200938950NA

PATIENT
  Age: 40 Year
  Sex: Female
  Weight: 85 kg

DRUGS (20)
  1. TRASYLOL [Suspect]
     Indication: PRODUCT USED FOR UNKNOWN INDICATION
     Dosage: 1 ML, INITIAL DOSE
     Route: 042
     Dates: start: 20050504, end: 20050504
  2. TRASYLOL [Suspect]
     Dosage: 100 CC LOADING DOSE
     Route: 042
     Dates: start: 20050504, end: 20050504
  3. ISOVUE-300 [Concomitant]
     Dosage: UNK
     Dates: start: 20050502, end: 20050502
  4. PAVULON [Concomitant]
     Dosage: UNK
     Dates: start: 20050504
  5. VERSED [Concomitant]
     Dosage: UNK
     Dates: start: 20050504
  6. HUMULIN 70/30 [Concomitant]
     Dosage: 18-20 UNITS EVERY EVENING
  7. PRAVACHOL [Concomitant]
     Dosage: 20 MG, QD
  8. HUMULIN 70/30 [Concomitant]
     Dosage: 60 UNITS EVERY MORNING
  9. ZOCOR [Concomitant]
     Dosage: 40 MG, QD
  10. HEPARIN [Concomitant]
     Dosage: UNK
     Dates: start: 20050504
  11. TRASYLOL [Suspect]
     Dosage: 25 CC/HR
     Route: 042
     Dates: start: 20050504, end: 20050504
  12. ACETYLSALICYLIC ACID SRT [Concomitant]
     Dosage: 325 MG, QD
  13. FENTANYL [Concomitant]
     Dosage: UNK
     Dates: start: 20050504
  14. ANECTINE [Concomitant]
     Dosage: UNK
     Dates: start: 20050504
  15. PRIMO STUDY DRUG [Concomitant]
     Dosage: UNK
     Dates: start: 20050504
  16. ZEBETA [Concomitant]
     Dosage: 5 MG, QD
  17. PENTOTHAL [Concomitant]
     Dosage: UNK
     Dates: start: 20050504
  18. PLAVIX [Concomitant]
     Dosage: 75 MG, QD
  19. PROTAMINE [Concomitant]
     Dosage: UNK
     Dates: start: 20050504
  20. RED BLOOD CELLS [Concomitant]
     Dosage: 2 U, UNK

REACTIONS (10)
  - INJURY [None]
  - STRESS [None]
  - UNEVALUABLE EVENT [None]
  - RENAL INJURY [None]
  - EMOTIONAL DISTRESS [None]
  - ANXIETY [None]
  - FEAR [None]
  - PAIN [None]
  - RENAL FAILURE [None]
  - RENAL IMPAIRMENT [None]
